FAERS Safety Report 25698487 (Version 1)
Quarter: 2025Q3

REPORT INFORMATION
  Report Type: Spontaneous
  Country: US (occurrence: US)
  Receive Date: 20250819
  Receipt Date: 20250819
  Transmission Date: 20251020
  Serious: Yes (Life-Threatening, Hospitalization, Other)
  Sender: VELOXIS PHARMACEUTICALS
  Company Number: US-MLMSERVICE-20250804-PI603594-00306-1

PATIENT
  Age: 6 Year
  Sex: Male

DRUGS (2)
  1. TACROLIMUS [Suspect]
     Active Substance: TACROLIMUS
     Indication: Immunosuppressant drug therapy
  2. AZATHIOPRINE [Concomitant]
     Active Substance: AZATHIOPRINE
     Indication: Immunosuppressant drug therapy

REACTIONS (9)
  - Multiple organ dysfunction syndrome [Recovered/Resolved]
  - Drug level above therapeutic [Unknown]
  - Cold type haemolytic anaemia [Recovered/Resolved]
  - Warm autoimmune haemolytic anaemia [Recovered/Resolved]
  - Acute kidney injury [Recovered/Resolved]
  - Thrombotic microangiopathy [Recovered/Resolved]
  - Mycoplasma infection [Unknown]
  - Hypertension [Unknown]
  - Product use issue [Unknown]
